FAERS Safety Report 25104029 (Version 1)
Quarter: 2025Q1

REPORT INFORMATION
  Report Type: Other
  Country: DE (occurrence: DE)
  Receive Date: 20250321
  Receipt Date: 20250321
  Transmission Date: 20250408
  Serious: Yes (Congenital Anomaly, Other)
  Sender: MACLEODS
  Company Number: DE-EMB-M202303757-1

PATIENT

DRUGS (6)
  1. NEBIVOLOL [Suspect]
     Active Substance: NEBIVOLOL
     Indication: Product used for unknown indication
     Dosage: 5 MG - 0 - 5 MG
     Route: 064
     Dates: start: 202303, end: 202311
  2. BUDESONIDE [Suspect]
     Active Substance: BUDESONIDE
     Indication: Product used for unknown indication
     Route: 064
     Dates: start: 202303, end: 202311
  3. FOLLITROPIN ALFA [Suspect]
     Active Substance: FOLLITROPIN ALFA
     Indication: Product used for unknown indication
     Route: 064
     Dates: start: 202303, end: 202304
  4. CHORIOGONADOTROPIN ALFA [Suspect]
     Active Substance: CHORIOGONADOTROPIN ALFA
     Indication: Product used for unknown indication
     Route: 064
     Dates: start: 202304, end: 202304
  5. ATOSIBAN [Suspect]
     Active Substance: ATOSIBAN
     Indication: Product used for unknown indication
     Route: 064
     Dates: start: 202310, end: 202311
  6. GANIRELIX [Suspect]
     Active Substance: GANIRELIX
     Indication: Product used for unknown indication
     Route: 064
     Dates: start: 202303, end: 202304

REACTIONS (3)
  - Fallot^s tetralogy [Not Recovered/Not Resolved]
  - Small for dates baby [Unknown]
  - Foetal exposure during pregnancy [Unknown]

NARRATIVE: CASE EVENT DATE: 20231101
